FAERS Safety Report 25606998 (Version 1)
Quarter: 2025Q3

REPORT INFORMATION
  Report Type: Spontaneous
  Country: CA (occurrence: CA)
  Receive Date: 20250725
  Receipt Date: 20250725
  Transmission Date: 20251021
  Serious: Yes (Hospitalization)
  Sender: FRESENIUS KABI
  Company Number: CA-FreseniusKabi-FK202510086

PATIENT
  Age: 86 Year
  Sex: Male
  Weight: 58 kg

DRUGS (10)
  1. HEPARIN SODIUM [Suspect]
     Active Substance: HEPARIN SODIUM
     Indication: Thrombosis prophylaxis
     Dosage: DOSE: 5000 UNITS?FOA-SOLUTION INTRAVENOUS
     Route: 058
  2. ASPIRIN [Suspect]
     Active Substance: ASPIRIN
     Indication: Arteriosclerosis coronary artery
     Dosage: FOA-NOT SPECIFIED
     Route: 048
  3. ACETAMINOPHEN [Concomitant]
     Active Substance: ACETAMINOPHEN
     Indication: Product used for unknown indication
  4. BIMATOPROST [Concomitant]
     Active Substance: BIMATOPROST
     Indication: Product used for unknown indication
  5. LEVOTHYROXINE [Concomitant]
     Active Substance: LEVOTHYROXINE
     Indication: Product used for unknown indication
  6. MORPHINE [Concomitant]
     Active Substance: MORPHINE
     Indication: Product used for unknown indication
  7. ONDANSETRON [Concomitant]
     Active Substance: ONDANSETRON
     Indication: Product used for unknown indication
  8. ROSUVASTATIN [Concomitant]
     Active Substance: ROSUVASTATIN
     Indication: Product used for unknown indication
  9. VANCOMYCIN [Concomitant]
     Active Substance: VANCOMYCIN
     Indication: Product used for unknown indication
  10. VITAMIN D [Concomitant]
     Active Substance: VITAMIN D NOS
     Indication: Product used for unknown indication

REACTIONS (2)
  - Duodenal ulcer [Recovered/Resolved]
  - Upper gastrointestinal haemorrhage [Recovered/Resolved]
